FAERS Safety Report 4368599-1 (Version None)
Quarter: 2004Q2

REPORT INFORMATION
  Report Type: 
  Country: None (occurrence: None)
  Receive Date: 20040602
  Receipt Date: 20040514
  Transmission Date: 20050107
  Serious: Yes (Hospitalization)
  Sender: FDA-Public Use
  Company Number: 04P-056-0260960-00

PATIENT
  Age: 80 Year
  Sex: Female

DRUGS (8)
  1. TRICOR [Suspect]
     Indication: HYPERCHOLESTEROLAEMIA
     Dosage: 1 DOSAGE FORMS, 1 IN 1 D, PER ORAL, FOR YEARS
     Route: 048
  2. FLUINDIONE [Concomitant]
  3. GINKGO TREE LEAVES EXTRACT [Concomitant]
  4. TROXERUTIN [Concomitant]
  5. COLECALCIFEROL [Concomitant]
  6. DIDRONEL PMO ^NORWICH EATON^ [Concomitant]
  7. BECLOMETHASONE DIPROPIONATE [Concomitant]
  8. PIRBUTEROL ACETATE [Concomitant]

REACTIONS (6)
  - CHEST PAIN [None]
  - DYSPNOEA [None]
  - HAEMATEMESIS [None]
  - HAEMOPTYSIS [None]
  - ORTHOPNOEA [None]
  - TONGUE HAEMORRHAGE [None]
